FAERS Safety Report 17139858 (Version 1)
Quarter: 2019Q4

REPORT INFORMATION
  Report Type: Spontaneous
  Country: US (occurrence: US)
  Receive Date: 20191119
  Receipt Date: 20191119
  Transmission Date: 20200122
  Serious: Yes (Other)
  Sender: FDA-Public Use
  Company Number: None

PATIENT
  Age: 77 Year
  Sex: Female

DRUGS (20)
  1. PRADAXA [Concomitant]
     Active Substance: DABIGATRAN ETEXILATE MESYLATE
  2. TYLENOL [Concomitant]
     Active Substance: ACETAMINOPHEN
  3. LEVOTHYROXINE. [Concomitant]
     Active Substance: LEVOTHYROXINE
  4. LOSARTAN. [Concomitant]
     Active Substance: LOSARTAN
  5. ADEMPAS [Suspect]
     Active Substance: RIOCIGUAT
     Indication: PULMONARY ARTERIAL HYPERTENSION
     Route: 048
     Dates: start: 201810
  6. CALCIUM CITRATE-VIT [Concomitant]
  7. FUROSEMIDE. [Concomitant]
     Active Substance: FUROSEMIDE
  8. NARCAN [Concomitant]
     Active Substance: NALOXONE HYDROCHLORIDE
  9. COLACE [Concomitant]
     Active Substance: DOCUSATE SODIUM
  10. GLIPIZIDE. [Concomitant]
     Active Substance: GLIPIZIDE
  11. SENNA [Concomitant]
     Active Substance: SENNA LEAF\SENNOSIDES\SENNOSIDES A AND B
  12. BUPROPION. [Concomitant]
     Active Substance: BUPROPION
  13. ADVAIR DISKUS [Concomitant]
     Active Substance: FLUTICASONE PROPIONATE\SALMETEROL XINAFOATE
  14. POTASSIUM CHLORIDE. [Concomitant]
     Active Substance: POTASSIUM CHLORIDE
  15. NORCO [Concomitant]
     Active Substance: ACETAMINOPHEN\HYDROCODONE BITARTRATE
  16. MELATONIN [Concomitant]
     Active Substance: MELATONIN
  17. OXAZEPAM. [Concomitant]
     Active Substance: OXAZEPAM
  18. ATORVASTATIN [Concomitant]
     Active Substance: ATORVASTATIN
  19. HUMULIN N [Concomitant]
     Active Substance: INSULIN HUMAN
  20. TEMPAZEPAM [Concomitant]

REACTIONS (5)
  - Abdominal pain [None]
  - Constipation [None]
  - Urinary tract infection [None]
  - Dysarthria [None]
  - Dizziness [None]

NARRATIVE: CASE EVENT DATE: 20191108
